FAERS Safety Report 16348901 (Version 1)
Quarter: 2019Q2

REPORT INFORMATION
  Report Type: Report from Study
  Country: JP (occurrence: JP)
  Receive Date: 20190523
  Receipt Date: 20190523
  Transmission Date: 20190711
  Serious: Yes (Hospitalization, Other)
  Sender: FDA-Public Use
  Company Number: JP-EISAI MEDICAL RESEARCH-EC-2019-056628

PATIENT
  Age: 44 Year
  Sex: Female
  Weight: 55 kg

DRUGS (9)
  1. SENNOSIDE [Concomitant]
     Active Substance: SENNOSIDES
  2. MAGNESIUM OXIDE. [Concomitant]
     Active Substance: MAGNESIUM OXIDE
  3. FYCOMPA [Suspect]
     Active Substance: PERAMPANEL
     Route: 048
     Dates: start: 20170603, end: 20170627
  4. INOVELON [Concomitant]
     Active Substance: RUFINAMIDE
     Route: 048
  5. PHENYTOIN. [Concomitant]
     Active Substance: PHENYTOIN
  6. LOXOPROFEN [Concomitant]
     Active Substance: LOXOPROFEN
  7. RISPERIDONE. [Concomitant]
     Active Substance: RISPERIDONE
  8. FYCOMPA [Suspect]
     Active Substance: PERAMPANEL
     Indication: PARTIAL SEIZURES
     Route: 048
     Dates: start: 20170516, end: 20170602
  9. FYCOMPA [Suspect]
     Active Substance: PERAMPANEL
     Route: 048
     Dates: start: 20170628, end: 20180628

REACTIONS (2)
  - Diplegia [Not Recovered/Not Resolved]
  - Suicide attempt [Recovering/Resolving]

NARRATIVE: CASE EVENT DATE: 20180120
